FAERS Safety Report 10016246 (Version 1)
Quarter: 2014Q1

REPORT INFORMATION
  Report Type: Spontaneous
  Country: DE (occurrence: DE)
  Receive Date: 20140317
  Receipt Date: 20140317
  Transmission Date: 20141002
  Serious: Yes (Hospitalization)
  Sender: FDA-Public Use
  Company Number: DE-MYLANLABS-2014S1005061

PATIENT
  Age: 70 Year
  Sex: Male

DRUGS (7)
  1. GLIBENCLAMIDE [Suspect]
     Indication: TYPE 2 DIABETES MELLITUS
     Route: 065
     Dates: start: 201110
  2. NEXAVAR [Interacting]
     Dosage: 800 MG/D (400MG AT 0800H, 1830H)
     Route: 065
     Dates: start: 20120110
  3. PROPRANOLOL [Interacting]
     Route: 065
  4. TORASEMIDE [Interacting]
     Route: 065
  5. AMLODIPINE [Interacting]
     Route: 065
  6. RAMIPRIL [Concomitant]
     Route: 065
  7. DIPYRONE [Concomitant]
     Route: 065

REACTIONS (2)
  - Hypoglycaemia [Recovered/Resolved]
  - Drug interaction [Recovered/Resolved]
